FAERS Safety Report 4532431-3 (Version None)
Quarter: 2004Q4

REPORT INFORMATION
  Report Type: 
  Country: None (occurrence: None)
  Receive Date: 20041217
  Receipt Date: 20041210
  Transmission Date: 20050328
  Serious: Yes (Death, Life-Threatening, Disabling, Other)
  Sender: FDA-Public Use
  Company Number: 2004-11-0913

PATIENT
  Age: 43 Year
  Sex: Female

DRUGS (12)
  1. PEG-INTRON [Suspect]
     Indication: CHRONIC HEPATITIS
     Dosage: 120 MCG QWK SUBCUTANEOUS
     Route: 058
     Dates: start: 20040527
  2. PEG-INTRON [Suspect]
     Indication: CRYOGLOBULINS
     Dosage: 120 MCG QWK SUBCUTANEOUS
     Route: 058
     Dates: start: 20040527
  3. REBETOL [Suspect]
     Indication: CHRONIC HEPATITIS
     Dosage: 1000 MG QD ORAL
     Route: 048
     Dates: start: 20040527
  4. REBETOL [Suspect]
     Indication: CRYOGLOBULINS
     Dosage: 1000 MG QD ORAL
     Route: 048
     Dates: start: 20040527
  5. PREDNISONE [Concomitant]
  6. VIOXX [Concomitant]
  7. DILANTIN [Concomitant]
  8. CATAPRES [Concomitant]
  9. LOPRESSOR [Concomitant]
  10. FLAGYL [Concomitant]
  11. ZOLOFT [Concomitant]
  12. LEXAPRO [Concomitant]

REACTIONS (5)
  - CEREBRAL THROMBOSIS [None]
  - CONVULSION [None]
  - DEPRESSED LEVEL OF CONSCIOUSNESS [None]
  - HAEMORRHAGE INTRACRANIAL [None]
  - HEADACHE [None]
